FAERS Safety Report 9214000 (Version 1)
Quarter: 2013Q2

REPORT INFORMATION
  Report Type: Spontaneous
  Country: DE (occurrence: DE)
  Receive Date: 20130405
  Receipt Date: 20130405
  Transmission Date: 20140414
  Serious: Yes (Other)
  Sender: FDA-Public Use
  Company Number: DE-PFIZER INC-2013106472

PATIENT
  Sex: 0

DRUGS (1)
  1. LYRICA [Suspect]

REACTIONS (5)
  - Depressed level of consciousness [Unknown]
  - Disorientation [Unknown]
  - Hallucination [Unknown]
  - Euphoric mood [Unknown]
  - Illusion [Unknown]
